FAERS Safety Report 8837833 (Version 1)
Quarter: 2012Q4

REPORT INFORMATION
  Report Type: Report from Study
  Country: JP (occurrence: JP)
  Receive Date: 20121012
  Receipt Date: 20121012
  Transmission Date: 20130627
  Serious: Yes (Other)
  Sender: FDA-Public Use
  Company Number: JP-VERTEX PHARMACEUTICAL INC.-2012-022599

PATIENT
  Age: 55 Year
  Sex: Female

DRUGS (8)
  1. VX-950 [Suspect]
     Indication: HEPATITIS C
     Dosage: 1500 mg, qd
     Route: 048
     Dates: start: 20120814
  2. RIBAVIRIN [Suspect]
     Indication: HEPATITIS C
     Dosage: 600 mg, qd
     Route: 048
     Dates: start: 20120814, end: 20120827
  3. RIBAVIRIN [Suspect]
     Dosage: 400 mg, qd
     Route: 048
     Dates: start: 20120828, end: 20120924
  4. RIBAVIRIN [Suspect]
     Dosage: 200 mg, qd
     Route: 048
     Dates: start: 20120925
  5. PEGINTERFERON ALFA-2B [Suspect]
     Indication: HEPATITIS C
     Dosage: 1.5 UNK, qw
     Route: 058
     Dates: start: 20120814, end: 20120903
  6. PEGINTERFERON ALFA-2B [Suspect]
     Dosage: 50 UNK, qw
     Route: 058
     Dates: start: 20120904, end: 20120917
  7. PEGINTERFERON ALFA-2B [Suspect]
     Dosage: 60 UNK, qw
     Route: 058
     Dates: start: 20120918
  8. FERROMIA /00023516/ [Concomitant]
     Dosage: 100 mg, qd
     Route: 048
     Dates: start: 20120814

REACTIONS (1)
  - Neutrophil count decreased [Recovered/Resolved]
